FAERS Safety Report 19639990 (Version 2)
Quarter: 2021Q3

REPORT INFORMATION
  Report Type: Spontaneous
  Country: US (occurrence: US)
  Receive Date: 20210730
  Receipt Date: 20210818
  Transmission Date: 20211014
  Serious: No
  Sender: FDA-Public Use
  Company Number: US-AIMMUNE THERAPEUTICS, INC.-2021AIMT00469

PATIENT

DRUGS (5)
  1. PALFORZIA [Suspect]
     Active Substance: PEANUT
     Dosage: 6 MG, 1X/DAY
     Route: 048
     Dates: start: 20210807
  2. PALFORZIA [Suspect]
     Active Substance: PEANUT
     Dosage: 6 MG, ONCE, LAST DOSE PRIOR TO EVENT ONSET
     Route: 048
     Dates: start: 20210721, end: 20210721
  3. PALFORZIA [Suspect]
     Active Substance: PEANUT
     Dosage: 3 MG, 1X/DAY
     Route: 048
     Dates: start: 20210722, end: 20210806
  4. PALFORZIA [Suspect]
     Active Substance: PEANUT
     Dosage: 6 MG, ONCE, LAST DOSE PRIOR TO EVENT ONSET
     Route: 048
     Dates: start: 20210714, end: 20210714
  5. PALFORZIA [Suspect]
     Active Substance: PEANUT
     Indication: FOOD ALLERGY
     Dosage: 6 MG, 1X/DAY
     Route: 048
     Dates: start: 20210713, end: 20210721

REACTIONS (4)
  - Nausea [Recovered/Resolved]
  - Abdominal pain upper [Recovered/Resolved]
  - Abdominal pain upper [Recovered/Resolved]
  - Nausea [Recovered/Resolved]

NARRATIVE: CASE EVENT DATE: 20210714
